FAERS Safety Report 19912961 (Version 1)
Quarter: 2021Q4

REPORT INFORMATION
  Report Type: Spontaneous
  Country: US (occurrence: US)
  Receive Date: 20211004
  Receipt Date: 20211004
  Transmission Date: 20220303
  Serious: No
  Sender: FDA-Public Use
  Company Number: US-PFIZER INC-202100951035

PATIENT
  Age: 68 Year
  Sex: Female

DRUGS (3)
  1. XELJANZ [Suspect]
     Active Substance: TOFACITINIB CITRATE
     Indication: Scleroderma
     Dosage: 5 MG
  2. XELJANZ [Suspect]
     Active Substance: TOFACITINIB CITRATE
     Indication: Morphoea
  3. XELJANZ [Suspect]
     Active Substance: TOFACITINIB CITRATE
     Indication: Radiotherapy

REACTIONS (5)
  - Off label use [Unknown]
  - Pain [Unknown]
  - Pain of skin [Unknown]
  - Erythema [Unknown]
  - Therapeutic response unexpected [Unknown]
